FAERS Safety Report 13321596 (Version 2)
Quarter: 2017Q1

REPORT INFORMATION
  Report Type: Spontaneous
  Country: JP (occurrence: JP)
  Receive Date: 20170309
  Receipt Date: 20170321
  Transmission Date: 20170428
  Serious: Yes (Life-Threatening, Hospitalization, Disabling, Other)
  Sender: FDA-Public Use
  Company Number: JP-ROCHE-1903785

PATIENT
  Age: 99 Year
  Sex: Female
  Weight: 55 kg

DRUGS (4)
  1. ARICEPT [Concomitant]
     Active Substance: DONEPEZIL HYDROCHLORIDE
     Dosage: DOSAGE IS UNCERTAIN.
     Route: 065
     Dates: start: 201411
  2. CLOPIDOGREL [Concomitant]
     Active Substance: CLOPIDOGREL BISULFATE
     Dosage: DOSAGE IS UNCERTAIN.
     Route: 065
     Dates: start: 201411
  3. TAIPROTON [Concomitant]
     Active Substance: LANSOPRAZOLE
     Route: 048
     Dates: start: 201411
  4. TAMIFLU [Suspect]
     Active Substance: OSELTAMIVIR PHOSPHATE
     Indication: INFLUENZA
     Route: 048
     Dates: start: 20170202, end: 20170204

REACTIONS (5)
  - Hip fracture [Not Recovered/Not Resolved]
  - Fall [Unknown]
  - Agitation [Recovered/Resolved]
  - Abnormal behaviour [Recovered/Resolved]
  - Glassy eyes [Recovered/Resolved]

NARRATIVE: CASE EVENT DATE: 20170204
